FAERS Safety Report 14015169 (Version 1)
Quarter: 2017Q3

REPORT INFORMATION
  Report Type: Spontaneous
  Country: DK (occurrence: DK)
  Receive Date: 20170927
  Receipt Date: 20170927
  Transmission Date: 20171128
  Serious: Yes (Hospitalization)
  Sender: FDA-Public Use
  Company Number: PHHY2017DK138477

PATIENT
  Age: 74 Year
  Sex: Female
  Weight: 133 kg

DRUGS (6)
  1. NIMBEX [Concomitant]
     Active Substance: CISATRACURIUM BESYLATE
     Indication: SEDATION
     Route: 065
     Dates: start: 20170907, end: 20170907
  2. EPHEDRINE. [Concomitant]
     Active Substance: EPHEDRINE
     Indication: SEDATION
     Route: 065
     Dates: start: 20170907, end: 20170907
  3. SEVOFLURANE. [Concomitant]
     Active Substance: SEVOFLURANE
     Indication: SEDATION
     Route: 065
     Dates: start: 20170907, end: 20170907
  4. ULTIVA [Concomitant]
     Active Substance: REMIFENTANIL HYDROCHLORIDE
     Indication: SEDATION
     Route: 065
     Dates: start: 20170907, end: 20170907
  5. PROPOFOL. [Concomitant]
     Active Substance: PROPOFOL
     Indication: SEDATION
     Route: 065
     Dates: start: 20170907, end: 20170907
  6. HEXAMYCIN [Suspect]
     Active Substance: GENTAMICIN
     Indication: ANTIBIOTIC PROPHYLAXIS
     Dosage: 320 MG, UNK
     Route: 042
     Dates: start: 20170907, end: 20170907

REACTIONS (1)
  - Urticaria [Recovering/Resolving]

NARRATIVE: CASE EVENT DATE: 20170907
